FAERS Safety Report 14324146 (Version 4)
Quarter: 2018Q1

REPORT INFORMATION
  Report Type: Spontaneous
  Country: JP (occurrence: JP)
  Receive Date: 20171226
  Receipt Date: 20180124
  Transmission Date: 20180509
  Serious: Yes (Hospitalization)
  Sender: FDA-Public Use
  Company Number: JP-DSJP-DSJ-2017-159218

PATIENT
  Age: 84 Year
  Sex: Male
  Weight: 77 kg

DRUGS (5)
  1. BISONO [Concomitant]
     Active Substance: BISOPROLOL
     Dosage: 8 MG, QD
     Route: 050
     Dates: start: 201508
  2. LIXIANA TABLETS 30MG [Suspect]
     Active Substance: EDOXABAN TOSYLATE
     Indication: ATRIAL FIBRILLATION
     Dosage: 30 MG, QD
     Route: 048
     Dates: start: 201508, end: 20171213
  3. LASIX [Concomitant]
     Active Substance: FUROSEMIDE
     Dosage: 40 MG, QD
     Route: 048
     Dates: start: 201508
  4. ALDACTONE A [Concomitant]
     Active Substance: SPIRONOLACTONE
     Dosage: 25 MG, QD
     Route: 048
     Dates: start: 201508
  5. HALFDIGOXIN KY [Concomitant]
     Dosage: 0.5 MG, QD
     Route: 048
     Dates: start: 201508

REACTIONS (3)
  - Shock haemorrhagic [Recovered/Resolved]
  - Gastric ulcer [Recovered/Resolved]
  - Gastrointestinal haemorrhage [Recovered/Resolved]

NARRATIVE: CASE EVENT DATE: 20171213
